FAERS Safety Report 16054285 (Version 1)
Quarter: 2019Q1

REPORT INFORMATION
  Report Type: Spontaneous
  Country: US (occurrence: US)
  Receive Date: 20190308
  Receipt Date: 20190308
  Transmission Date: 20190418
  Serious: Yes (Hospitalization)
  Sender: FDA-Public Use
  Company Number: US-BAXTER-2019BAX004745

PATIENT
  Age: 60 Year
  Sex: Female
  Weight: 111.6 kg

DRUGS (9)
  1. PREDNISONE. [Suspect]
     Active Substance: PREDNISONE
     Indication: PRODUCT USED FOR UNKNOWN INDICATION
     Route: 065
     Dates: start: 20180918
  2. PREDNISONE. [Suspect]
     Active Substance: PREDNISONE
     Dosage: TAPERING PREDNISONE
     Route: 065
  3. LISINOPRIL. [Concomitant]
     Active Substance: LISINOPRIL
     Indication: PRODUCT USED FOR UNKNOWN INDICATION
     Route: 065
     Dates: start: 2016
  4. FUROSEMIDE INJECTION USP [Suspect]
     Active Substance: FUROSEMIDE
     Indication: OEDEMA PERIPHERAL
     Route: 065
     Dates: start: 20190201, end: 20190203
  5. SIROLIMUS. [Suspect]
     Active Substance: SIROLIMUS
     Dosage: THE LAST DOSE OF SIROLIMUS PRIOR TO THE SAE WAS TAKEN ON 05FEB2019.
     Route: 048
     Dates: end: 20190206
  6. PREDNISONE. [Suspect]
     Active Substance: PREDNISONE
     Dosage: RESUMING HIGH DOSE STEROIDS (PREDNISONE)
     Route: 065
  7. TORSEMIDE. [Suspect]
     Active Substance: TORSEMIDE
     Indication: PRODUCT USED FOR UNKNOWN INDICATION
     Dosage: RETURN TO TORSEMIDE FROM FUROSEMIDE
     Route: 065
     Dates: start: 201902
  8. SIROLIMUS. [Suspect]
     Active Substance: SIROLIMUS
     Indication: CHRONIC GRAFT VERSUS HOST DISEASE
     Dosage: HOLDING SIROLIMUS FOR A MONTH
     Route: 048
     Dates: start: 20181009
  9. TORSEMIDE. [Suspect]
     Active Substance: TORSEMIDE
     Indication: OEDEMA PERIPHERAL
     Route: 065
     Dates: start: 201807

REACTIONS (3)
  - Drug ineffective [Unknown]
  - Acute kidney injury [Not Recovered/Not Resolved]
  - Generalised oedema [Not Recovered/Not Resolved]

NARRATIVE: CASE EVENT DATE: 201902
